FAERS Safety Report 7705346-7 (Version None)
Quarter: 2011Q3

REPORT INFORMATION
  Report Type: 
  Country: None (occurrence: None)
  Receive Date: 20110823
  Receipt Date: 20110823
  Transmission Date: 20111222
  Serious: Yes (Hospitalization)
  Sender: FDA-Public Use
  Company Number: None

PATIENT
  Age: 43 Year
  Sex: Female
  Weight: 73.2 kg

DRUGS (2)
  1. CYCLOPHOSPHAMIDE [Suspect]
     Indication: CHEMOTHERAPY
     Dosage: 1110MG Q2W IV
     Route: 042
     Dates: start: 20110804
  2. DOXORUBICIN HCL [Suspect]
     Indication: CHEMOTHERAPY
     Dosage: 111 MG Q2W IV
     Route: 042
     Dates: start: 20110804

REACTIONS (3)
  - PYREXIA [None]
  - CHILLS [None]
  - WHITE BLOOD CELL COUNT DECREASED [None]
